FAERS Safety Report 14434432 (Version 3)
Quarter: 2018Q1

REPORT INFORMATION
  Report Type: Spontaneous
  Country: RO (occurrence: RO)
  Receive Date: 20180124
  Receipt Date: 20180321
  Transmission Date: 20180509
  Serious: Yes (Death, Life-Threatening, Hospitalization, Disabling, Other)
  Sender: FDA-Public Use
  Company Number: RO-PFIZER INC-2018034387

PATIENT
  Age: 87 Year
  Sex: Male

DRUGS (3)
  1. RAMIPRIL. [Suspect]
     Active Substance: RAMIPRIL
     Indication: HYPERTENSION
     Dosage: 10 MG, DAILY
     Route: 048
     Dates: start: 2016, end: 20171219
  2. PRADAXA [Suspect]
     Active Substance: DABIGATRAN ETEXILATE MESYLATE
     Indication: EMBOLISM VENOUS
     Dosage: 220 MG, DAILY
     Route: 048
     Dates: start: 20171212, end: 20171229
  3. FUROSEMIDE. [Concomitant]
     Active Substance: FUROSEMIDE
     Dosage: UNK
     Dates: start: 20171219, end: 20171229

REACTIONS (5)
  - Anuria [Fatal]
  - Acute kidney injury [Fatal]
  - Haematuria [Fatal]
  - Stupor [Fatal]
  - Abdominal pain [Fatal]

NARRATIVE: CASE EVENT DATE: 20171223
